FAERS Safety Report 24082840 (Version 1)
Quarter: 2024Q3

REPORT INFORMATION
  Report Type: Spontaneous
  Country: CN (occurrence: CN)
  Receive Date: 20240712
  Receipt Date: 20240712
  Transmission Date: 20241016
  Serious: Yes (Death)
  Sender: STRIDES
  Company Number: CN-STRIDES ARCOLAB LIMITED-2024SP008332

PATIENT
  Age: 77 Year
  Sex: Male

DRUGS (12)
  1. PREDNISOLONE [Suspect]
     Active Substance: PREDNISOLONE
     Indication: Coronary artery dilatation
     Dosage: 40 MILLIGRAM, QD
     Route: 065
     Dates: start: 2021
  2. PREDNISOLONE [Suspect]
     Active Substance: PREDNISOLONE
     Indication: Immunoglobulin G4 related disease
     Dosage: 17.5 MILLIGRAM, QD
     Route: 065
     Dates: start: 2021
  3. PREDNISOLONE [Suspect]
     Active Substance: PREDNISOLONE
     Dosage: 40 MILLIGRAM, QD
     Route: 065
     Dates: start: 2022
  4. MYCOPHENOLATE MOFETIL [Suspect]
     Active Substance: MYCOPHENOLATE MOFETIL
     Indication: Coronary artery dilatation
     Dosage: 0.5 GRAM, BID
     Route: 065
     Dates: start: 2021
  5. MYCOPHENOLATE MOFETIL [Suspect]
     Active Substance: MYCOPHENOLATE MOFETIL
     Indication: Immunoglobulin G4 related disease
  6. ASPIRIN [Suspect]
     Active Substance: ASPIRIN
     Indication: Immunoglobulin G4 related disease
     Dosage: UNK
     Route: 065
     Dates: start: 2021, end: 2022
  7. ASPIRIN [Suspect]
     Active Substance: ASPIRIN
     Indication: Coronary artery dilatation
     Dosage: 100 MILLIGRAM, QD
     Route: 065
     Dates: start: 2022
  8. ATORVASTATIN [Suspect]
     Active Substance: ATORVASTATIN
     Indication: Immunoglobulin G4 related disease
     Dosage: 20 MILLIGRAM, AT BED TIME, EVERY NIGHT
     Route: 065
     Dates: start: 2022
  9. ATORVASTATIN [Suspect]
     Active Substance: ATORVASTATIN
     Indication: Coronary artery dilatation
  10. CLOPIDOGREL [Suspect]
     Active Substance: CLOPIDOGREL BISULFATE
     Indication: Immunoglobulin G4 related disease
     Dosage: 75 MILLIGRAM, QD
     Route: 065
     Dates: start: 2022
  11. CLOPIDOGREL [Suspect]
     Active Substance: CLOPIDOGREL BISULFATE
     Indication: Coronary artery dilatation
  12. CEFTRIAXONE [Concomitant]
     Active Substance: CEFTRIAXONE\CEFTRIAXONE SODIUM
     Indication: Antibiotic therapy
     Dosage: 100 MILLIGRAM, QD
     Route: 065
     Dates: start: 2022

REACTIONS (3)
  - Drug ineffective [Fatal]
  - Disease progression [Fatal]
  - Off label use [Unknown]

NARRATIVE: CASE EVENT DATE: 20220101
